FAERS Safety Report 4889964-X (Version None)
Quarter: 2006Q1

REPORT INFORMATION
  Report Type: 
  Country: None (occurrence: None)
  Receive Date: 20060124
  Receipt Date: 20060112
  Transmission Date: 20060701
  Serious: Yes (Other)
  Sender: FDA-Public Use
  Company Number: US-AVENTIS-200610466US

PATIENT
  Sex: Female

DRUGS (14)
  1. LANTUS [Suspect]
     Indication: DIABETES MELLITUS NON-INSULIN-DEPENDENT
     Dosage: DOSE UNIT: UNITS
     Route: 058
     Dates: start: 20060111
  2. LANTUS [Suspect]
     Dosage: DOSE UNIT: UNITS
     Route: 058
     Dates: start: 20060112
  3. OPTICLIK (INSULIN INJECTION PEN) [Suspect]
     Dates: start: 20060112
  4. METAGLIP [Concomitant]
     Dosage: DOSE: 5/500 2 TABS
  5. COUMADIN [Concomitant]
     Dosage: DOSE: UNK
  6. NEURONTIN [Concomitant]
     Dosage: DOSE: UNK
  7. CAPTOPRIL [Concomitant]
     Dosage: DOSE: UNK
  8. CARDIZEM [Concomitant]
     Dosage: DOSE: UNK
  9. SERUMLIPIDREDUCING AGENTS [Concomitant]
     Dosage: DOSE: UNK
  10. NEXIUM [Concomitant]
     Dosage: DOSE: UNK
  11. K-TAB [Concomitant]
     Dosage: DOSE: UNK
  12. COREG [Concomitant]
     Dosage: DOSE: UNK
  13. ASPIRIN [Concomitant]
  14. FUROSEMIDE [Concomitant]
     Dosage: DOSE: UNK

REACTIONS (2)
  - BLOOD GLUCOSE DECREASED [None]
  - HYPOGLYCAEMIA [None]
